FAERS Safety Report 6574792-X (Version None)
Quarter: 2010Q1

REPORT INFORMATION
  Report Type: 
  Country: None (occurrence: None)
  Receive Date: 20100209
  Receipt Date: 20100126
  Transmission Date: 20100710
  Serious: Yes (Other)
  Sender: FDA-Public Use
  Company Number: PHHY2010DE05786

PATIENT
  Sex: Female

DRUGS (5)
  1. DIOVAN HCT [Suspect]
     Indication: HYPERTENSION
     Dosage: UNK
     Route: 048
  2. RASILEZ [Suspect]
     Indication: HYPERTENSION
     Dosage: 150 MG, UNK
     Route: 048
  3. NEBIVOLOL [Concomitant]
     Indication: HYPERTENSION
     Dosage: UNK
     Route: 048
  4. RAMIPRIL [Concomitant]
     Indication: HYPERTENSION
     Dosage: UNK
     Route: 048
  5. MOXONIDINE [Concomitant]
     Indication: HYPERTENSION
     Dosage: 0.3 MG, UNK
     Route: 048

REACTIONS (1)
  - POLYNEUROPATHY [None]
